FAERS Safety Report 5128805-2 (Version None)
Quarter: 2006Q4

REPORT INFORMATION
  Report Type: 
  Country: None (occurrence: None)
  Receive Date: 20061017
  Receipt Date: 20061004
  Transmission Date: 20070319
  Serious: Yes (Other)
  Sender: FDA-Public Use
  Company Number: PHEH2006US12505

PATIENT
  Age: 78 Year
  Sex: Female

DRUGS (5)
  1. TRILEPTAL [Suspect]
     Indication: NEUROPATHY
     Dosage: 300 MG, BID
     Route: 048
  2. AVAPRO [Concomitant]
  3. ZETIA [Concomitant]
  4. WARFARIN SODIUM [Concomitant]
  5. EFFEXOR XR [Concomitant]

REACTIONS (7)
  - ARTHROSCOPIC SURGERY [None]
  - CONDITION AGGRAVATED [None]
  - DIZZINESS [None]
  - FALL [None]
  - HYPERHIDROSIS [None]
  - MENISCUS LESION [None]
  - MENISCUS OPERATION [None]
